FAERS Safety Report 12817785 (Version 2)
Quarter: 2017Q3

REPORT INFORMATION
  Report Type: Report from Study
  Country: US (occurrence: US)
  Receive Date: 20161006
  Receipt Date: 20170810
  Transmission Date: 20171127
  Serious: Yes (Other)
  Sender: FDA-Public Use
  Company Number: US-ROCHE-1836147

PATIENT
  Age: 58 Year
  Sex: Female
  Weight: 77.5 kg

DRUGS (20)
  1. BEVACIZUMAB. [Suspect]
     Active Substance: BEVACIZUMAB
     Dosage: COURSE 11, NO DOSE CHANGE
     Route: 042
     Dates: start: 20130710
  2. BEVACIZUMAB. [Suspect]
     Active Substance: BEVACIZUMAB
     Dosage: COURSE 13, NO DOSE CHANGE
     Route: 042
     Dates: start: 20130821
  3. BEVACIZUMAB. [Suspect]
     Active Substance: BEVACIZUMAB
     Dosage: COURSE 18, NO DOSE CHANGE
     Route: 042
     Dates: start: 20131218
  4. BEVACIZUMAB. [Suspect]
     Active Substance: BEVACIZUMAB
     Dosage: COURSE 6, NO DOSE CHANGE
     Route: 042
     Dates: start: 20130327
  5. BEVACIZUMAB. [Suspect]
     Active Substance: BEVACIZUMAB
     Dosage: COURSE 20, NO DOSE CHANGE
     Route: 042
     Dates: start: 20140129
  6. BEVACIZUMAB. [Suspect]
     Active Substance: BEVACIZUMAB
     Dosage: COURSE 3, NO DOSE CHANGE
     Route: 042
     Dates: start: 20130123
  7. BEVACIZUMAB. [Suspect]
     Active Substance: BEVACIZUMAB
     Indication: OVARIAN EPITHELIAL CANCER
     Dosage: COURSE 1, NO DOSE CHANGE
     Route: 042
     Dates: start: 20121214
  8. BEVACIZUMAB. [Suspect]
     Active Substance: BEVACIZUMAB
     Dosage: COURSE 10, NO DOSE CHANGE
     Route: 042
     Dates: start: 20130619
  9. BEVACIZUMAB. [Suspect]
     Active Substance: BEVACIZUMAB
     Dosage: COURSE 14, NO DOSE CHANGE
     Route: 042
     Dates: start: 20130911
  10. BEVACIZUMAB. [Suspect]
     Active Substance: BEVACIZUMAB
     Dosage: COURSE 4, NO DOSE CHANGE
     Route: 042
     Dates: start: 20130213
  11. BEVACIZUMAB. [Suspect]
     Active Substance: BEVACIZUMAB
     Dosage: COURSE 7, NO DOSE CHANGE
     Route: 042
     Dates: start: 20130417
  12. BEVACIZUMAB. [Suspect]
     Active Substance: BEVACIZUMAB
     Dosage: COURSE 9, NO DOSE CHANGE
     Route: 042
     Dates: start: 20130529
  13. BEVACIZUMAB. [Suspect]
     Active Substance: BEVACIZUMAB
     Dosage: COURSE 12, NO DOSE CHANGE
     Route: 042
     Dates: start: 20130731
  14. BEVACIZUMAB. [Suspect]
     Active Substance: BEVACIZUMAB
     Dosage: COURSE 2, NO DOSE CHANGE
     Route: 042
     Dates: start: 20130103
  15. BEVACIZUMAB. [Suspect]
     Active Substance: BEVACIZUMAB
     Dosage: COURSE 5, NO DOSE CHANGE
     Route: 042
     Dates: start: 20130306
  16. BEVACIZUMAB. [Suspect]
     Active Substance: BEVACIZUMAB
     Dosage: COURSE 8, NO DOSE CHANGE
     Route: 042
     Dates: start: 20130508
  17. BEVACIZUMAB. [Suspect]
     Active Substance: BEVACIZUMAB
     Dosage: COURSE 15, NO DOSE CHANGE
     Route: 042
     Dates: start: 20131002
  18. BEVACIZUMAB. [Suspect]
     Active Substance: BEVACIZUMAB
     Dosage: COURSE 16, NO DOSE CHANGE
     Route: 042
     Dates: start: 20131023
  19. BEVACIZUMAB. [Suspect]
     Active Substance: BEVACIZUMAB
     Dosage: COURSE 17, NO DOSE CHANGE
     Route: 042
     Dates: start: 20131122
  20. BEVACIZUMAB. [Suspect]
     Active Substance: BEVACIZUMAB
     Dosage: COURSE 19, NO DOSE CHANGE
     Route: 042
     Dates: start: 20140108

REACTIONS (2)
  - Hyponatraemia [Unknown]
  - Hypophosphataemia [Unknown]
